FAERS Safety Report 10256016 (Version 5)
Quarter: 2014Q4

REPORT INFORMATION
  Report Type: Report from Study
  Country: JP (occurrence: JP)
  Receive Date: 20140624
  Receipt Date: 20141005
  Transmission Date: 20150528
  Serious: No
  Sender: FDA-Public Use
  Company Number: PHHY2014JP003839

PATIENT
  Age: 6 Month
  Sex: Female

DRUGS (2)
  1. ACZ885 [Suspect]
     Active Substance: CANAKINUMAB
     Indication: CHRONIC INFANTILE NEUROLOGICAL CUTANEOUS AND ARTICULAR SYNDROME
     Dosage: 13 MG, DAILY
     Route: 065
     Dates: start: 20130507
  2. ACZ885 [Suspect]
     Active Substance: CANAKINUMAB
     Indication: CRYOPYRIN ASSOCIATED PERIODIC SYNDROME
     Dosage: 2 MG/KG, UNK
     Route: 065

REACTIONS (8)
  - Hepatic enzyme increased [Recovering/Resolving]
  - Gastroenteritis [Recovering/Resolving]
  - Knee deformity [Not Recovered/Not Resolved]
  - Pharyngitis [Recovering/Resolving]
  - C-reactive protein increased [Recovered/Resolved]
  - Nasopharyngitis [Recovering/Resolving]
  - Conjunctivitis [Recovering/Resolving]
  - Arthropathy [Not Recovered/Not Resolved]

NARRATIVE: CASE EVENT DATE: 20130510
